FAERS Safety Report 5703159-9 (Version None)
Quarter: 2008Q2

REPORT INFORMATION
  Report Type: 
  Country: None (occurrence: None)
  Receive Date: 20080411
  Receipt Date: 20080324
  Transmission Date: 20081010
  Serious: No
  Sender: FDA-Public Use
  Company Number: US-BAYER-200812199NA

PATIENT
  Age: 24 Year
  Sex: Female
  Weight: 67 kg

DRUGS (3)
  1. YAZ [Suspect]
     Indication: CONTRACEPTION
     Route: 048
     Dates: start: 20080116
  2. FISH OIL [Concomitant]
     Route: 048
  3. MULTI-VITAMIN [Concomitant]
     Route: 048

REACTIONS (2)
  - HYPOMENORRHOEA [None]
  - MUSCLE SPASMS [None]
